FAERS Safety Report 5200882-X (Version None)
Quarter: 2007Q1

REPORT INFORMATION
  Report Type: 
  Country: None (occurrence: None)
  Receive Date: 20070108
  Receipt Date: 20070103
  Transmission Date: 20070707
  Serious: Yes (Death)
  Sender: FDA-Public Use
  Company Number: CA-SOLVAY-00307000038

PATIENT
  Age: 18357 Day
  Sex: Male
  Weight: 77.1 kg

DRUGS (7)
  1. MORPHINE [Concomitant]
     Indication: PAIN
     Dosage: DAILY DOSE:  UNKNOWN
     Route: 065
  2. MARINOL [Suspect]
     Indication: ILL-DEFINED DISORDER
     Dosage: DAILY DOSE: 5 MILLIGRAM(S)
     Route: 048
     Dates: start: 20061121, end: 20061127
  3. PANTALOC [Concomitant]
     Indication: GASTROOESOPHAGEAL REFLUX DISEASE
     Dosage: DAILY DOSE:  UNKNOWN
     Route: 065
  4. METOCLOP [Concomitant]
     Indication: NAUSEA
     Dosage: DAILY DOSE:  UNKNOWN
     Route: 065
  5. DOCUSATE [Concomitant]
     Indication: CONSTIPATION
     Dosage: DAILY DOSE:  UNKNOWN
     Route: 065
  6. FLOMAX [Concomitant]
     Indication: PROSTATISM
     Dosage: DAILY DOSE:  UNKNOWN
     Route: 065
  7. ERYTHROPOEITIN [Concomitant]
     Indication: RED BLOOD CELL COUNT INCREASED
     Dosage: DAILY DOSE:  UNKNOWN
     Route: 065

REACTIONS (1)
  - DEATH [None]
